FAERS Safety Report 8539478-0 (Version None)
Quarter: 2012Q3

REPORT INFORMATION
  Report Type: 
  Country: None (occurrence: None)
  Receive Date: 20120726
  Receipt Date: 20120720
  Transmission Date: 20120928
  Serious: No
  Sender: FDA-Public Use
  Company Number: US-PFIZER INC-2012176296

PATIENT
  Sex: Male

DRUGS (2)
  1. BENEFIX [Suspect]
     Dosage: 3000 IU, WEEKLY
  2. BENEFIX [Suspect]
     Indication: FACTOR IX DEFICIENCY
     Dosage: UNK
     Dates: start: 20070101

REACTIONS (1)
  - EPISTAXIS [None]
